FAERS Safety Report 19643844 (Version 2)
Quarter: 2022Q3

REPORT INFORMATION
  Report Type: Report from Study
  Country: HN (occurrence: HN)
  Receive Date: 20210730
  Receipt Date: 20220805
  Transmission Date: 20221027
  Serious: Yes (Other)
  Sender: FDA-Public Use
  Company Number: HN-NOVARTISPH-NVSC2021HN170423

PATIENT
  Age: 78 Year
  Sex: Female

DRUGS (5)
  1. EXFORGE [Suspect]
     Active Substance: AMLODIPINE BESYLATE\VALSARTAN
     Indication: Product used for unknown indication
     Dosage: 5/320 MG
     Route: 065
  2. EXFORGE [Suspect]
     Active Substance: AMLODIPINE BESYLATE\VALSARTAN
     Dosage: 10/320 MG (STOP DATE: 2 AND A HALF MONTHS AGO)
     Route: 065
  3. EXFORGE [Suspect]
     Active Substance: AMLODIPINE BESYLATE\VALSARTAN
     Dosage: 5/320 MG (START DATE: 2 AND A HALF MONTHS AGO)
     Route: 065
  4. EXFORGE [Suspect]
     Active Substance: AMLODIPINE BESYLATE\VALSARTAN
     Dosage: 5/320 MG (START DATE: 6 MONTHS AGO APPROXIMATELY, STOP DATE: 4 MONTHS AGO)
     Route: 065
  5. EXFORGE [Suspect]
     Active Substance: AMLODIPINE BESYLATE\VALSARTAN
     Dosage: 10/320 MG (START DATE: 4 MONTHS AGO)
     Route: 065

REACTIONS (4)
  - Deafness [Unknown]
  - Ear discomfort [Unknown]
  - Hypertension [Unknown]
  - Headache [Unknown]
